FAERS Safety Report 26100105 (Version 1)
Quarter: 2025Q4

REPORT INFORMATION
  Report Type: Report from Study
  Country: US (occurrence: US)
  Receive Date: 20251128
  Receipt Date: 20251128
  Transmission Date: 20260117
  Serious: Yes (Hospitalization, Other)
  Sender: TAKEDA
  Company Number: US-TAKEDA-2025TUS032839

PATIENT
  Age: 69 Year
  Sex: Female
  Weight: 70 kg

DRUGS (15)
  1. TEDUGLUTIDE [Suspect]
     Active Substance: TEDUGLUTIDE
     Indication: Short-bowel syndrome
     Dosage: UNK
  2. TEDUGLUTIDE [Suspect]
     Active Substance: TEDUGLUTIDE
     Dosage: 0.146 MILLILITER, QD
  3. TEDUGLUTIDE [Suspect]
     Active Substance: TEDUGLUTIDE
  4. TEDUGLUTIDE [Suspect]
     Active Substance: TEDUGLUTIDE
  5. FENTANYL [Concomitant]
     Active Substance: FENTANYL
     Dosage: 25 MICROGRAM, Q72H
  6. OXYCODONE [Concomitant]
     Active Substance: OXYCODONE
     Dosage: UNK UNK, Q8HR
  7. TORSEMIDE [Concomitant]
     Active Substance: TORSEMIDE
  8. SPIRONOLACTONE [Concomitant]
     Active Substance: SPIRONOLACTONE
  9. INSULIN NOS [Concomitant]
     Active Substance: INSULIN NOS
     Indication: Type 2 diabetes mellitus
  10. ZYRTEC [Concomitant]
     Active Substance: CETIRIZINE HYDROCHLORIDE
     Indication: Antiallergic therapy
  11. PRAVASTATIN [Concomitant]
     Active Substance: PRAVASTATIN
  12. ESCITALOPRAM [Concomitant]
     Active Substance: ESCITALOPRAM OXALATE
  13. LOPERAMIDE [Concomitant]
     Active Substance: LOPERAMIDE
     Indication: Abdominal discomfort
  14. GABAPENTIN [Concomitant]
     Active Substance: GABAPENTIN
  15. BACLOFEN [Concomitant]
     Active Substance: BACLOFEN

REACTIONS (11)
  - Sepsis [Unknown]
  - Haematocrit decreased [Unknown]
  - Gastrointestinal haemorrhage [Unknown]
  - Vascular device infection [Unknown]
  - Blood iron decreased [Unknown]
  - Faecal occult blood positive [Unknown]
  - Melaena [Unknown]
  - Stoma site haemorrhage [Unknown]
  - Scar [Unknown]
  - Faecal occult blood [Unknown]
  - Abdominal pain [Unknown]

NARRATIVE: CASE EVENT DATE: 20250312
